FAERS Safety Report 17032576 (Version 1)
Quarter: 2019Q4

REPORT INFORMATION
  Report Type: Spontaneous
  Country: US (occurrence: US)
  Receive Date: 20191014
  Receipt Date: 20191014
  Transmission Date: 20200122
  Serious: No
  Sender: FDA-Public Use
  Company Number: None

PATIENT
  Age: 56 Year
  Sex: Female
  Weight: 74.39 kg

DRUGS (1)
  1. ELETRIPTAN. [Suspect]
     Active Substance: ELETRIPTAN
     Indication: MIGRAINE
     Route: 048
     Dates: start: 20190309, end: 20190311

REACTIONS (6)
  - Diarrhoea [None]
  - Product substitution issue [None]
  - Nausea [None]
  - Muscle spasms [None]
  - Bladder pain [None]
  - Treatment failure [None]

NARRATIVE: CASE EVENT DATE: 20190309
